FAERS Safety Report 18868111 (Version 2)
Quarter: 2021Q1

REPORT INFORMATION
  Report Type: Other
  Country: CA (occurrence: CA)
  Receive Date: 20210209
  Receipt Date: 20210212
  Transmission Date: 20210420
  Serious: No
  Sender: FDA-Public Use
  Company Number: CA-INTERCEPT-PM2021000270

PATIENT
  Age: 78 Year
  Sex: Female

DRUGS (2)
  1. OCALIVA [Suspect]
     Active Substance: OBETICHOLIC ACID
     Indication: PRIMARY BILIARY CHOLANGITIS
     Dosage: 5 MILLIGRAM, QD
     Route: 048
     Dates: start: 20190507
  2. URSODIOL. [Concomitant]
     Active Substance: URSODIOL
     Dosage: 750 MILLIGRAM, QD
     Route: 048

REACTIONS (4)
  - Wound secretion [Unknown]
  - Pruritus [Not Recovered/Not Resolved]
  - Wound [Unknown]
  - Fall [Recovered/Resolved]

NARRATIVE: CASE EVENT DATE: 202101
